FAERS Safety Report 13101146 (Version 1)
Quarter: 2017Q1

REPORT INFORMATION
  Report Type: Spontaneous
  Country: US (occurrence: US)
  Receive Date: 20170110
  Receipt Date: 20170110
  Transmission Date: 20170428
  Serious: Yes (Other)
  Sender: FDA-Public Use
  Company Number: US-TEVA-727402USA

PATIENT
  Sex: Female
  Weight: 160 kg

DRUGS (3)
  1. NADOLOL. [Suspect]
     Active Substance: NADOLOL
     Route: 065
  2. NIFEDIPINE. [Suspect]
     Active Substance: NIFEDIPINE
     Route: 065
  3. DIAZEPAM. [Suspect]
     Active Substance: DIAZEPAM
     Route: 065

REACTIONS (8)
  - Product substitution issue [Unknown]
  - Chest pain [Unknown]
  - Burning sensation [Unknown]
  - Cerebrovascular accident [Unknown]
  - Erythema [Unknown]
  - Pain in extremity [Unknown]
  - Pruritus generalised [Unknown]
  - Back pain [Unknown]
